FAERS Safety Report 6405254-8 (Version None)
Quarter: 2009Q4

REPORT INFORMATION
  Report Type: 
  Country: None (occurrence: None)
  Receive Date: 20091016
  Receipt Date: 20091016
  Transmission Date: 20100525
  Serious: Yes (Disabling, Other)
  Sender: FDA-Public Use
  Company Number: None

PATIENT
  Sex: Female
  Weight: 53.0709 kg

DRUGS (7)
  1. LYRICA [Suspect]
     Indication: TRIGEMINAL NEURALGIA
     Dosage: 200MG X2 ORAL APX. LAST 2-3 YRS.
     Route: 048
  2. TOPROL-XL [Concomitant]
  3. LIPITOR [Concomitant]
  4. XANAX [Concomitant]
  5. MULTI-VITAMIN [Concomitant]
  6. FISH OIL [Concomitant]
  7. ASPIRIN [Concomitant]

REACTIONS (8)
  - CONSTIPATION [None]
  - MACULAR DEGENERATION [None]
  - MYOPIA [None]
  - RETINAL DETACHMENT [None]
  - RETINAL TEAR [None]
  - RETINOSCHISIS [None]
  - SOMNOLENCE [None]
  - VISION BLURRED [None]
